FAERS Safety Report 6188225-9 (Version None)
Quarter: 2009Q2

REPORT INFORMATION
  Report Type: 
  Country: None (occurrence: None)
  Receive Date: 20090513
  Receipt Date: 20090506
  Transmission Date: 20091009
  Serious: Yes (Other)
  Sender: FDA-Public Use
  Company Number: US-BIOGENIDEC-2008BI034904

PATIENT
  Age: 47 Year
  Sex: Female

DRUGS (3)
  1. TYSABRI [Suspect]
     Indication: MULTIPLE SCLEROSIS
     Route: 042
     Dates: start: 20081114, end: 20081201
  2. TOPAMAX [Concomitant]
     Indication: CONVULSION
     Dates: start: 20090201
  3. EFFEXOR [Concomitant]
     Indication: MULTIPLE SCLEROSIS RELAPSE
     Dates: start: 20080301

REACTIONS (4)
  - CONVULSION [None]
  - FEELING ABNORMAL [None]
  - SINUS DISORDER [None]
  - SINUSITIS [None]
